FAERS Safety Report 18628295 (Version 1)
Quarter: 2020Q4

REPORT INFORMATION
  Report Type: Spontaneous
  Country: US (occurrence: US)
  Receive Date: 20201217
  Receipt Date: 20201217
  Transmission Date: 20210114
  Serious: No
  Sender: FDA-Public Use
  Company Number: US-ESPERIONTHERAPEUTICS-2020USA00026

PATIENT
  Sex: Female

DRUGS (6)
  1. NORTRIPTYLINE [Concomitant]
     Active Substance: NORTRIPTYLINE
     Dosage: UNK
  2. PROPRANOLOL [Concomitant]
     Active Substance: PROPRANOLOL HYDROCHLORIDE
     Dosage: UNK
  3. PREMARIN [Concomitant]
     Active Substance: ESTROGENS, CONJUGATED
     Dosage: UNK
  4. SYNTHROID [Concomitant]
     Active Substance: LEVOTHYROXINE SODIUM
     Dosage: UNK
  5. NEXLETOL [Suspect]
     Active Substance: BEMPEDOIC ACID
     Indication: LOW DENSITY LIPOPROTEIN INCREASED
     Dosage: 180 MILLIGRAM, QD
     Route: 048
     Dates: start: 202004
  6. CRESTOR [Concomitant]
     Active Substance: ROSUVASTATIN CALCIUM
     Dosage: 10 MILLIGRAM, EVERY OTHER DAY

REACTIONS (1)
  - Blood uric acid increased [Not Recovered/Not Resolved]
